FAERS Safety Report 21130454 (Version 1)
Quarter: 2022Q3

REPORT INFORMATION
  Report Type: Report from Study
  Country: US (occurrence: US)
  Receive Date: 20220726
  Receipt Date: 20220726
  Transmission Date: 20221027
  Serious: Yes (Death)
  Sender: FDA-Public Use
  Company Number: US-EXELIXIS-XL18422054222

PATIENT

DRUGS (1)
  1. CABOZANTINIB [Suspect]
     Active Substance: CABOZANTINIB
     Indication: Germ cell cancer
     Dosage: 60 MG, QD
     Route: 048
     Dates: start: 20220211, end: 20220718

REACTIONS (1)
  - Embolism [Fatal]
